FAERS Safety Report 16013039 (Version 1)
Quarter: 2019Q1

REPORT INFORMATION
  Report Type: Spontaneous
  Country: US (occurrence: US)
  Receive Date: 20190227
  Receipt Date: 20190227
  Transmission Date: 20190418
  Serious: Yes (Hospitalization)
  Sender: FDA-Public Use
  Company Number: None

PATIENT
  Sex: Male

DRUGS (18)
  1. MODAFINIL. [Concomitant]
     Active Substance: MODAFINIL
  2. MELOXICAM. [Concomitant]
     Active Substance: MELOXICAM
  3. VITAMIN D [Concomitant]
     Active Substance: CHOLECALCIFEROL
  4. CONTOUR [Concomitant]
  5. GABAPENTIN. [Concomitant]
     Active Substance: GABAPENTIN
  6. GLYBURIDE. [Concomitant]
     Active Substance: GLYBURIDE
  7. NORTRIPTYLIN [Concomitant]
     Active Substance: NORTRIPTYLINE
  8. FORTEO [Suspect]
     Active Substance: TERIPARATIDE
     Indication: SKIN INFECTION
     Route: 058
     Dates: start: 20180821
  9. HYDROCO/APAP [Concomitant]
     Active Substance: ACETAMINOPHEN\HYDROCODONE
  10. METAXALONE. [Concomitant]
     Active Substance: METAXALONE
  11. PREDNISOLONE. [Concomitant]
     Active Substance: PREDNISOLONE
  12. DIVALPROEX [Concomitant]
     Active Substance: DIVALPROEX SODIUM
  13. METHOCARBAM [Concomitant]
     Active Substance: METHOCARBAMOL
  14. MOVANTIK [Concomitant]
     Active Substance: NALOXEGOL OXALATE
  15. ATORVASTATIN [Concomitant]
     Active Substance: ATORVASTATIN
  16. OXYCONTIN [Concomitant]
     Active Substance: OXYCODONE HYDROCHLORIDE
  17. METOPROL TAR [Concomitant]
  18. ASPIRIN. [Concomitant]
     Active Substance: ASPIRIN

REACTIONS (1)
  - Spinal fusion surgery [None]
